FAERS Safety Report 24640749 (Version 1)
Quarter: 2024Q4

REPORT INFORMATION
  Report Type: Spontaneous
  Country: CA (occurrence: CA)
  Receive Date: 20241120
  Receipt Date: 20241120
  Transmission Date: 20250115
  Serious: Yes (Other)
  Sender: CSL BEHRING
  Company Number: CA-BEH-2024185470

PATIENT
  Age: 38 Year
  Sex: Female

DRUGS (6)
  1. ALBUMIN HUMAN [Suspect]
     Active Substance: ALBUMIN HUMAN
     Indication: Product used for unknown indication
     Dosage: UNK
     Route: 065
  2. AIMOVIG [Suspect]
     Active Substance: ERENUMAB-AOOE
     Indication: Migraine
     Dosage: 140 MG, 1 EVERY 1 MONTH, SOLUTION SUBCUTANEOUS
     Route: 058
  3. AIMOVIG [Suspect]
     Active Substance: ERENUMAB-AOOE
     Dosage: 140 MG, 1 EVERY 1 MONTH, SOLUTION FOR INJECTION
     Route: 058
  4. AIMOVIG [Suspect]
     Active Substance: ERENUMAB-AOOE
     Dosage: 140 MG, 1 EVERY 1 MONTH, SOLUTION FOR INJECTION
     Route: 058
  5. BOTULINUM TOXIN TYPE A [Concomitant]
     Active Substance: BOTULINUM TOXIN TYPE A
     Indication: Migraine
     Route: 065
  6. ELAVIL [Concomitant]
     Active Substance: AMITRIPTYLINE HYDROCHLORIDE
     Indication: Migraine
     Dosage: UNK, TABLETS
     Route: 065

REACTIONS (16)
  - Asthenia [Unknown]
  - CSF volume increased [Unknown]
  - Fatigue [Unknown]
  - Headache [Unknown]
  - Heart rate increased [Unknown]
  - Influenza like illness [Unknown]
  - Intracranial pressure increased [Unknown]
  - Lethargy [Unknown]
  - Malaise [Unknown]
  - Menstruation irregular [Unknown]
  - Migraine [Unknown]
  - Myalgia [Unknown]
  - Nausea [Unknown]
  - Oropharyngeal pain [Unknown]
  - Pyrexia [Unknown]
  - Rash [Unknown]
